FAERS Safety Report 23441477 (Version 1)
Quarter: 2024Q1

REPORT INFORMATION
  Report Type: Report from Study
  Country: US (occurrence: US)
  Receive Date: 20240125
  Receipt Date: 20240125
  Transmission Date: 20240410
  Serious: Yes (Other)
  Sender: FDA-Public Use
  Company Number: US-ABBVIE-5599745

PATIENT
  Sex: Male

DRUGS (2)
  1. IMBRUVICA [Suspect]
     Active Substance: IBRUTINIB
     Indication: Chronic kidney disease
     Route: 048
     Dates: start: 202302
  2. IMBRUVICA [Suspect]
     Active Substance: IBRUTINIB
     Indication: Chronic kidney disease
     Route: 048

REACTIONS (1)
  - Surgery [Unknown]
